FAERS Safety Report 10250602 (Version 2)
Quarter: 2014Q3

REPORT INFORMATION
  Report Type: Report from Study
  Country: TW (occurrence: TW)
  Receive Date: 20140620
  Receipt Date: 20140703
  Transmission Date: 20150326
  Serious: Yes (Hospitalization, Other)
  Sender: FDA-Public Use
  Company Number: TW-BRISTOL-MYERS SQUIBB COMPANY-21041082

PATIENT
  Age: 66 Year
  Sex: Female

DRUGS (8)
  1. ORENCIA [Suspect]
     Active Substance: ABATACEPT
     Indication: RHEUMATOID ARTHRITIS
     Dosage: 500MG ORENCIA IN 100CC. NORMAL SALINE WITH IV FILTER RUN 30 MIN
     Route: 042
     Dates: start: 20130220
  2. DIOVAN [Concomitant]
     Active Substance: VALSARTAN
  3. FOLIC ACID. [Concomitant]
     Active Substance: FOLIC ACID
  4. PREDONINE [Concomitant]
     Active Substance: PREDNISOLONE\PREDNISOLONE ACETATE\PREDNISOLONE SODIUM SUCCINATE
  5. PLAQUENIL [Concomitant]
     Active Substance: HYDROXYCHLOROQUINE SULFATE
  6. ADALAT [Concomitant]
     Active Substance: NIFEDIPINE
  7. MAGNESIUM OXIDE. [Concomitant]
     Active Substance: MAGNESIUM OXIDE
  8. CELEBREX [Concomitant]
     Active Substance: CELECOXIB

REACTIONS (2)
  - Back pain [Recovered/Resolved]
  - Compression fracture [Unknown]

NARRATIVE: CASE EVENT DATE: 2014
